FAERS Safety Report 18414785 (Version 1)
Quarter: 2020Q4

REPORT INFORMATION
  Report Type: Spontaneous
  Country: US (occurrence: US)
  Receive Date: 20201022
  Receipt Date: 20201022
  Transmission Date: 20210114
  Serious: No
  Sender: FDA-Public Use
  Company Number: US-GLAXOSMITHKLINE-US2020AMR203638

PATIENT
  Sex: Female

DRUGS (1)
  1. LAMICTAL XR [Suspect]
     Active Substance: LAMOTRIGINE
     Indication: SEIZURE
     Dosage: 50 MG, QD
     Route: 065
     Dates: start: 2010

REACTIONS (5)
  - Fall [Unknown]
  - Impaired healing [Unknown]
  - Mobility decreased [Unknown]
  - Hand fracture [Unknown]
  - Peripheral swelling [Unknown]
